FAERS Safety Report 6155888-3 (Version None)
Quarter: 2009Q2

REPORT INFORMATION
  Report Type: 
  Country: None (occurrence: None)
  Receive Date: 20090415
  Receipt Date: 20090408
  Transmission Date: 20091009
  Serious: Yes (Hospitalization)
  Sender: FDA-Public Use
  Company Number: PHHO2009KR04599

PATIENT
  Sex: Male
  Weight: 61 kg

DRUGS (4)
  1. ERL 080A ERL+TAB [Suspect]
     Indication: RENAL TRANSPLANT
     Dosage: 540 MG, BID
     Route: 048
     Dates: start: 20090226, end: 20090405
  2. ERL 080A ERL+TAB [Suspect]
     Dosage: 360 MG, BID
     Route: 048
     Dates: start: 20090405
  3. PROGRAF [Suspect]
     Indication: RENAL TRANSPLANT
     Dosage: 2 MG, BID
     Route: 048
     Dates: start: 20090226, end: 20090405
  4. PROGRAF [Suspect]
     Dosage: 1.5 MG, BID
     Route: 048
     Dates: start: 20090405

REACTIONS (7)
  - ABDOMINAL DISCOMFORT [None]
  - ABDOMINAL PAIN [None]
  - CYTOMEGALOVIRUS ANTIBODY POSITIVE [None]
  - CYTOMEGALOVIRUS GASTROENTERITIS [None]
  - GASTRITIS ATROPHIC [None]
  - NAUSEA [None]
  - VOMITING [None]
